FAERS Safety Report 5065057-6 (Version None)
Quarter: 2006Q3

REPORT INFORMATION
  Report Type: 
  Country: None (occurrence: None)
  Receive Date: 20060706
  Receipt Date: 20060513
  Transmission Date: 20061208
  Serious: No
  Sender: FDA-Public Use
  Company Number: 200613167BWH

PATIENT
  Age: 52 Year
  Sex: Male

DRUGS (7)
  1. LEVITRA [Suspect]
     Indication: ERECTILE DYSFUNCTION
     Dosage: SEE IMAGE
     Route: 048
     Dates: start: 20050101
  2. LEVITRA [Suspect]
     Indication: ERECTILE DYSFUNCTION
     Dosage: SEE IMAGE
     Route: 048
     Dates: start: 20050101
  3. LEVITRA [Suspect]
     Indication: ERECTILE DYSFUNCTION
     Dosage: SEE IMAGE
     Route: 048
     Dates: start: 20050101
  4. LEVITRA [Suspect]
     Indication: ERECTILE DYSFUNCTION
     Dosage: SEE IMAGE
     Route: 048
     Dates: start: 20050101
  5. LEVITRA [Suspect]
     Indication: ERECTILE DYSFUNCTION
     Dosage: SEE IMAGE
     Route: 048
     Dates: start: 20050101
  6. LEVITRA [Suspect]
     Indication: ERECTILE DYSFUNCTION
     Dosage: SEE IMAGE
     Route: 048
     Dates: start: 20060214
  7. ANTENOL [Concomitant]

REACTIONS (5)
  - EJACULATION FAILURE [None]
  - ERECTILE DYSFUNCTION [None]
  - ERECTION INCREASED [None]
  - HEADACHE [None]
  - HYPOAESTHESIA [None]
